FAERS Safety Report 4551723-5 (Version None)
Quarter: 2005Q1

REPORT INFORMATION
  Report Type: 
  Country: None (occurrence: None)
  Receive Date: 20050112
  Receipt Date: 20050103
  Transmission Date: 20050727
  Serious: Yes (Death)
  Sender: FDA-Public Use
  Company Number: 200416161BCC

PATIENT
  Age: 76 Year
  Sex: Female
  Weight: 86.1834 kg

DRUGS (1)
  1. ALEVE [Suspect]
     Dates: start: 20040901

REACTIONS (1)
  - MYOCARDIAL INFARCTION [None]
